FAERS Safety Report 8086844-6 (Version None)
Quarter: 2012Q1

REPORT INFORMATION
  Report Type: 
  Country: None (occurrence: None)
  Receive Date: 20120128
  Receipt Date: 20110519
  Transmission Date: 20120608
  Serious: No
  Sender: FDA-Public Use
  Company Number: US-ABBOTT-11P-163-0727110-00

PATIENT
  Sex: Male
  Weight: 88.53 kg

DRUGS (1)
  1. HUMIRA [Suspect]
     Indication: CROHN'S DISEASE
     Dates: start: 20100101

REACTIONS (6)
  - CONSTIPATION [None]
  - MALAISE [None]
  - DEVICE MALFUNCTION [None]
  - DRUG DOSE OMISSION [None]
  - FEELING ABNORMAL [None]
  - FATIGUE [None]
